FAERS Safety Report 20229411 (Version 4)
Quarter: 2022Q2

REPORT INFORMATION
  Report Type: Report from Study
  Country: CN (occurrence: CN)
  Receive Date: 20211225
  Receipt Date: 20220401
  Transmission Date: 20220720
  Serious: Yes (Hospitalization, Other)
  Sender: FDA-Public Use
  Company Number: CN-NOVARTISPH-NVSC2021CN292935

PATIENT
  Age: 47 Year
  Sex: Female
  Weight: 62 kg

DRUGS (10)
  1. TYKERB [Suspect]
     Active Substance: LAPATINIB DITOSYLATE
     Indication: Product used for unknown indication
     Dosage: 1250 MG, QD (Q21D)
     Route: 048
     Dates: start: 20210813
  2. TYKERB [Suspect]
     Active Substance: LAPATINIB DITOSYLATE
     Dosage: 1250 MG, QD (Q21D)
     Route: 048
     Dates: start: 20210813
  3. TYKERB [Suspect]
     Active Substance: LAPATINIB DITOSYLATE
     Dosage: 1250 MG, QD (Q21D)
     Route: 048
     Dates: start: 20210813
  4. CAPECITABINE [Suspect]
     Active Substance: CAPECITABINE
     Indication: Breast cancer metastatic
     Dosage: 600 MG, BID (D1-14)Q21D
     Route: 048
     Dates: start: 20210813
  5. CAPECITABINE [Suspect]
     Active Substance: CAPECITABINE
     Dosage: 1000 MG, BID (D1-14)Q21D
     Route: 048
     Dates: start: 20210813
  6. CEFUROXIME SODIUM [Concomitant]
     Active Substance: CEFUROXIME SODIUM
     Indication: Infection prophylaxis
     Dosage: 1.5 G, QD
     Route: 041
     Dates: start: 20211210, end: 20211210
  7. CEFUROXIME SODIUM [Concomitant]
     Active Substance: CEFUROXIME SODIUM
     Dosage: 1.5 G, QD
     Route: 041
     Dates: start: 20211213, end: 20211213
  8. VITAMIN C [Concomitant]
     Active Substance: ASCORBIC ACID
     Indication: Vitamin supplementation
     Dosage: 2 G, QD
     Route: 041
     Dates: start: 20211213, end: 20211213
  9. POTASSIUM CHLORIDE [Concomitant]
     Active Substance: POTASSIUM CHLORIDE
     Indication: Prophylaxis
     Dosage: 1 G, QD
     Route: 041
     Dates: start: 20211213, end: 20211213
  10. HEPARIN SODIUM [Concomitant]
     Active Substance: HEPARIN SODIUM
     Indication: Prophylaxis
     Dosage: 12500 IU, QD
     Route: 042
     Dates: start: 20211214, end: 20211214

REACTIONS (6)
  - Vaginal haemorrhage [Recovered/Resolved]
  - Endometrial thickening [Unknown]
  - Hydrosalpinx [Unknown]
  - Uterine leiomyoma [Unknown]
  - Endometrial hyperplasia [Unknown]
  - Uterine polyp [Unknown]

NARRATIVE: CASE EVENT DATE: 20211101
